FAERS Safety Report 21238407 (Version 1)
Quarter: 2022Q3

REPORT INFORMATION
  Report Type: Report from Study
  Country: US (occurrence: US)
  Receive Date: 20220822
  Receipt Date: 20220822
  Transmission Date: 20221027
  Serious: Yes (Hospitalization)
  Sender: FDA-Public Use
  Company Number: US-TAKEDA-2022TUS056808

PATIENT
  Age: 10 Year
  Sex: Male

DRUGS (7)
  1. IDURSULFASE [Suspect]
     Active Substance: IDURSULFASE
     Indication: Mucopolysaccharidosis II
     Dosage: UNK UNK, 1/WEEK
     Route: 042
     Dates: start: 20130313
  2. ZANTAC [Concomitant]
     Active Substance: RANITIDINE HYDROCHLORIDE
     Indication: Gastrooesophageal reflux disease
     Dosage: UNK
     Route: 048
     Dates: start: 2013, end: 20130531
  3. DIPHENHYDRAMINE [Concomitant]
     Active Substance: DIPHENHYDRAMINE
     Indication: Premedication
     Dosage: UNK
     Route: 048
     Dates: start: 20130329
  4. DIPHENHYDRAMINE [Concomitant]
     Active Substance: DIPHENHYDRAMINE
     Dosage: UNK
     Route: 048
     Dates: start: 20140815, end: 20140815
  5. FERROUS SULFATE [Concomitant]
     Active Substance: FERROUS SULFATE
     Indication: Iron deficiency anaemia
     Dosage: UNK
     Route: 048
     Dates: start: 2014
  6. CHILDRENS TYLENOL [Concomitant]
     Active Substance: ACETAMINOPHEN
     Indication: Pyrexia
     Dosage: UNK
     Route: 048
     Dates: start: 20140502, end: 201405
  7. VERSED [Concomitant]
     Active Substance: MIDAZOLAM HYDROCHLORIDE
     Dosage: 5 MILLIGRAM
     Route: 048
     Dates: start: 20191028

REACTIONS (1)
  - Ear injury [Recovered/Resolved]

NARRATIVE: CASE EVENT DATE: 20220809
